FAERS Safety Report 4825943-6 (Version None)
Quarter: 2005Q4

REPORT INFORMATION
  Report Type: 
  Country: None (occurrence: None)
  Receive Date: 20051014
  Receipt Date: 20050706
  Transmission Date: 20060501
  Serious: No
  Sender: FDA-Public Use
  Company Number: 2005SP001760

PATIENT
  Age: 54 Year
  Sex: Male

DRUGS (5)
  1. LUNESTA [Suspect]
     Indication: INSOMNIA
     Dosage: 2 MG HS ORAL; 8 MG HS ORAL
     Route: 048
     Dates: start: 20050627, end: 20050101
  2. LUNESTA [Suspect]
     Indication: INSOMNIA
     Dosage: 2 MG HS ORAL; 8 MG HS ORAL
     Route: 048
     Dates: start: 20050101, end: 20050707
  3. AMBIEN [Concomitant]
  4. TYLENOL (CAPLET) [Concomitant]
  5. NATURAL SLEEP AIDS [Concomitant]

REACTIONS (2)
  - DRUG INEFFECTIVE [None]
  - INSOMNIA [None]
